FAERS Safety Report 8317593-4 (Version None)
Quarter: 2012Q2

REPORT INFORMATION
  Report Type: 
  Country: None (occurrence: None)
  Receive Date: 20120427
  Receipt Date: 20110503
  Transmission Date: 20120825
  Serious: No
  Sender: FDA-Public Use
  Company Number: US-GLAXOSMITHKLINE-A0925589A

PATIENT
  Age: 59 Year
  Sex: Female

DRUGS (7)
  1. MULTI-VITAMIN [Concomitant]
  2. VESICARE [Concomitant]
  3. LAXATIVE [Concomitant]
  4. LIPITOR [Concomitant]
  5. LYRICA [Concomitant]
  6. STOOL SOFTENER [Concomitant]
  7. ZOFRAN [Suspect]
     Indication: VOMITING
     Dosage: 4MG AS REQUIRED
     Route: 048

REACTIONS (1)
  - DRUG INEFFECTIVE [None]
